FAERS Safety Report 16150441 (Version 2)
Quarter: 2019Q2

REPORT INFORMATION
  Report Type: Report from Study
  Country: US (occurrence: US)
  Receive Date: 20190402
  Receipt Date: 20190517
  Transmission Date: 20190711
  Serious: Yes (Death, Hospitalization)
  Sender: FDA-Public Use
  Company Number: US-ACTELION-A-NJ2019-185253

PATIENT
  Age: 59 Year
  Sex: Female

DRUGS (3)
  1. OXYGEN. [Concomitant]
     Active Substance: OXYGEN
     Dosage: 4 L/MIN, CONT INFUS
  2. OXYGEN. [Concomitant]
     Active Substance: OXYGEN
     Dosage: 3 L/MIN, CONT INFUS
  3. OPSUMIT [Suspect]
     Active Substance: MACITENTAN
     Indication: PULMONARY ARTERIAL HYPERTENSION
     Dosage: 10 MG, QD
     Route: 048
     Dates: start: 20181009

REACTIONS (5)
  - Oxygen saturation decreased [Unknown]
  - General physical health deterioration [Unknown]
  - Anxiety [Unknown]
  - Death [Fatal]
  - Oxygen consumption increased [Unknown]

NARRATIVE: CASE EVENT DATE: 20190313
